FAERS Safety Report 8067113-7 (Version None)
Quarter: 2012Q1

REPORT INFORMATION
  Report Type: 
  Country: None (occurrence: None)
  Receive Date: 20120124
  Receipt Date: 20120109
  Transmission Date: 20120608
  Serious: Yes (Hospitalization)
  Sender: FDA-Public Use
  Company Number: GB-WATSON-2012-00584

PATIENT
  Sex: Male

DRUGS (1)
  1. ALBUTEROL SULFATE AUTOHALER [Suspect]
     Indication: LOWER RESPIRATORY TRACT INFECTION
     Dosage: UNKNOWN DOSE THREE TIMES A DAY
     Route: 065

REACTIONS (6)
  - RASH GENERALISED [None]
  - MUSCLE SPASMS [None]
  - PAIN [None]
  - DYSSTASIA [None]
  - THROAT TIGHTNESS [None]
  - DRUG DOSE OMISSION [None]
